FAERS Safety Report 5563824-3 (Version None)
Quarter: 2007Q4

REPORT INFORMATION
  Report Type: 
  Country: None (occurrence: None)
  Receive Date: 20071217
  Receipt Date: 20070823
  Transmission Date: 20080405
  Serious: No
  Sender: FDA-Public Use
  Company Number: US-ASTRAZENECA-2007UW20216

PATIENT
  Age: 52 Year
  Sex: Female
  Weight: 136.1 kg

DRUGS (6)
  1. CRESTOR [Suspect]
     Indication: BLOOD CHOLESTEROL INCREASED
     Route: 048
     Dates: start: 20060301
  2. ZESTRIL [Concomitant]
  3. NEURONTIN [Concomitant]
  4. INSULIN [Concomitant]
  5. COENZYME Q10 [Concomitant]
  6. ASPIRIN [Concomitant]

REACTIONS (1)
  - PSORIASIS [None]
